FAERS Safety Report 8376442-9 (Version None)
Quarter: 2012Q2

REPORT INFORMATION
  Report Type: 
  Country: None (occurrence: None)
  Receive Date: 20120518
  Receipt Date: 20120504
  Transmission Date: 20120825
  Serious: Yes (Disabling, Other)
  Sender: FDA-Public Use
  Company Number: JP-2012-13541

PATIENT
  Age: 57 Year
  Sex: Male
  Weight: 48 kg

DRUGS (21)
  1. HERPAMINE (DENOPAMINE) [Concomitant]
  2. DIART (AZOSEMIDE) TABLET [Suspect]
     Indication: CARDIAC FAILURE
     Dosage: 60 MG MILLIGRAM(S), DAILY DOSE, ORAL
     Route: 048
     Dates: end: 20120121
  3. DEPAS (ETIZOLAM) [Concomitant]
  4. FUROSEMIDE [Concomitant]
  5. DOBUPUM (DOBUTAMINE HYDROCHLORIDE) [Concomitant]
  6. WARFARIN SODIUM [Concomitant]
  7. FERROMIA (FERROUS SODIUM CITRATE) [Concomitant]
  8. XYLOCAINE [Concomitant]
  9. SPIRONOLACTONE [Suspect]
     Indication: CARDIAC FAILURE
     Dosage: 25 MG MILLIGRAM(S), DAILY DOSE, ORAL
     Route: 048
     Dates: end: 20120121
  10. SLOW-K [Concomitant]
  11. KCI (KCI) [Concomitant]
  12. LASIX [Suspect]
     Indication: CARDIAC FAILURE
     Dosage: 10 MG MILLIGRAM(S), DAILY DOSE, INTRAVENOUS
     Route: 042
     Dates: start: 20120118
  13. ALDACTONE [Suspect]
     Dosage: ORAL
     Route: 048
  14. RABEPRAZOLE SODIUM [Concomitant]
  15. VITAMEDIN (BENFOTIAMINE, CYANOCOBALAMIN, PYRIDOXINE HYDROCHLORIDE) [Concomitant]
  16. SAMSCA [Suspect]
     Indication: FLUID RETENTION
     Dosage: 15 MG MILLIGRAM(S), QAM, ORAL
     Route: 048
     Dates: start: 20120119, end: 20120121
  17. TORSEMIDE [Concomitant]
  18. TAMSULOSIN HYDROCHLORIDE [Concomitant]
  19. CARVEDILOL [Concomitant]
  20. LENDEM (BROTIZOLAM) [Concomitant]
  21. DIGOXIN [Concomitant]

REACTIONS (4)
  - BLOOD PRESSURE DECREASED [None]
  - VENTRICULAR TACHYCARDIA [None]
  - POLYURIA [None]
  - THIRST [None]
